FAERS Safety Report 6391147-1 (Version None)
Quarter: 2009Q4

REPORT INFORMATION
  Report Type: 
  Country: None (occurrence: None)
  Receive Date: 20091007
  Receipt Date: 20090924
  Transmission Date: 20100525
  Serious: Yes (Hospitalization, Other)
  Sender: FDA-Public Use
  Company Number: US-PFIZER INC-2005117023

PATIENT
  Sex: Female
  Weight: 89 kg

DRUGS (7)
  1. PROVERA [Suspect]
     Indication: HORMONE REPLACEMENT THERAPY
     Dosage: 2.5 MG, UNK
     Route: 048
     Dates: start: 19940101, end: 19951101
  2. PROVERA [Suspect]
     Indication: MENOPAUSE
  3. MEDROXYPROGESTERONE ACETATE TABLET [Suspect]
     Indication: HORMONE REPLACEMENT THERAPY
  4. PREMARIN [Suspect]
     Indication: HORMONE REPLACEMENT THERAPY
     Dosage: 0.625 MG, UNK
     Dates: start: 19940101, end: 19951101
  5. PREMARIN [Suspect]
     Indication: MENOPAUSE
  6. PREMPRO [Suspect]
     Indication: HORMONE REPLACEMENT THERAPY
     Dosage: 0.625/ 2.5MG
     Dates: start: 19951101, end: 20001101
  7. PREMPRO [Suspect]
     Indication: MENOPAUSE

REACTIONS (1)
  - BREAST CANCER FEMALE [None]
